FAERS Safety Report 14022250 (Version 1)
Quarter: 2017Q3

REPORT INFORMATION
  Report Type: Spontaneous
  Country: AR (occurrence: AR)
  Receive Date: 20170928
  Receipt Date: 20170928
  Transmission Date: 20171128
  Serious: Yes (Other)
  Sender: FDA-Public Use
  Company Number: AR-REGENERON PHARMACEUTICALS, INC.-2017-23093

PATIENT

DRUGS (2)
  1. EYLEA [Suspect]
     Active Substance: AFLIBERCEPT
     Indication: CEREBRAL THROMBOSIS
     Dosage: 3 DOSES OF EYLIS PRIOR THE EVENT
     Dates: start: 2016
  2. EYLEA [Suspect]
     Active Substance: AFLIBERCEPT
     Indication: MACULAR OEDEMA

REACTIONS (10)
  - Visual acuity tests abnormal [Unknown]
  - Anterior chamber flare [Unknown]
  - Off label use [Unknown]
  - Posterior capsule rupture [Recovering/Resolving]
  - Cystoid macular oedema [Recovering/Resolving]
  - Cataract operation [Unknown]
  - Vitritis [Unknown]
  - Vitreous haze [Recovering/Resolving]
  - Product use in unapproved indication [Unknown]
  - Retinal degeneration [Unknown]

NARRATIVE: CASE EVENT DATE: 2016
